FAERS Safety Report 16616195 (Version 3)
Quarter: 2019Q3

REPORT INFORMATION
  Report Type: Report from Study
  Country: CA (occurrence: CA)
  Receive Date: 20190723
  Receipt Date: 20190902
  Transmission Date: 20191004
  Serious: Yes (Other)
  Sender: FDA-Public Use
  Company Number: CA-B.I. PHARMACEUTICALS,INC./RIDGEFIELD-2019-BI-023926

PATIENT
  Age: 64 Year
  Sex: Male

DRUGS (2)
  1. VOLTAREN [Concomitant]
     Active Substance: DICLOFENAC SODIUM
     Indication: PRODUCT USED FOR UNKNOWN INDICATION
     Route: 065
  2. OFEV [Suspect]
     Active Substance: NINTEDANIB
     Indication: IDIOPATHIC PULMONARY FIBROSIS
     Route: 048
     Dates: start: 20190525, end: 20190714

REACTIONS (7)
  - Lung disorder [Recovered/Resolved]
  - Feeling hot [Not Recovered/Not Resolved]
  - Pulmonary pain [Recovered/Resolved]
  - Pain [Recovered/Resolved]
  - Flatulence [Not Recovered/Not Resolved]
  - Yellow skin [Recovered/Resolved]
  - Constipation [Not Recovered/Not Resolved]

NARRATIVE: CASE EVENT DATE: 20190607
